FAERS Safety Report 6593940-9 (Version None)
Quarter: 2010Q1

REPORT INFORMATION
  Report Type: 
  Country: None (occurrence: None)
  Receive Date: 20100218
  Receipt Date: 20100218
  Transmission Date: 20100710
  Serious: Yes (Hospitalization)
  Sender: FDA-Public Use
  Company Number: None

PATIENT
  Age: 51 Year
  Sex: Female
  Weight: 108 kg

DRUGS (1)
  1. NAPROXEN [Suspect]
     Dosage: 500 MG BID PO
     Route: 048
     Dates: start: 20090812, end: 20091109

REACTIONS (4)
  - ABDOMINAL PAIN [None]
  - GASTRIC HAEMORRHAGE [None]
  - RECTAL HAEMORRHAGE [None]
  - VOMITING [None]
